FAERS Safety Report 6635936-4 (Version None)
Quarter: 2010Q1

REPORT INFORMATION
  Report Type: 
  Country: None (occurrence: None)
  Receive Date: 20100316
  Receipt Date: 20100302
  Transmission Date: 20100710
  Serious: Yes (Other)
  Sender: FDA-Public Use
  Company Number: DE-BRISTOL-MYERS SQUIBB COMPANY-14879811

PATIENT
  Age: 72 Year
  Sex: Female
  Weight: 59 kg

DRUGS (13)
  1. ONGLYZA [Suspect]
     Indication: DIABETES MELLITUS
     Route: 048
     Dates: start: 20091111, end: 20091201
  2. METFORMIN HCL [Suspect]
     Indication: DIABETES MELLITUS
     Route: 048
     Dates: start: 20090926, end: 20091105
  3. ACETYLSALICYLIC ACID SRT [Concomitant]
  4. DIOVAN [Concomitant]
  5. PANTOPRAZOLE [Concomitant]
  6. PREDNISOLONE [Concomitant]
  7. SPIRONOLACTONE [Concomitant]
  8. FUROSEMIDE [Concomitant]
  9. SIMVASTATIN [Concomitant]
  10. FALITHROM [Concomitant]
  11. ALENDRONATE SODIUM [Concomitant]
  12. CALCIUM [Concomitant]
  13. VITAMIN D [Concomitant]

REACTIONS (1)
  - BLOOD CREATININE INCREASED [None]
